FAERS Safety Report 4443722-9 (Version None)
Quarter: 2004Q3

REPORT INFORMATION
  Report Type: 
  Country: None (occurrence: None)
  Receive Date: 20040729
  Receipt Date: 20040407
  Transmission Date: 20050211
  Serious: Yes (Death)
  Sender: FDA-Public Use
  Company Number: USA-2004-0014422

PATIENT
  Age: 45 Year
  Sex: Female
  Weight: 57.6 kg

DRUGS (2)
  1. MORPHINE SULFATE [Suspect]
     Indication: CANCER PAIN
  2. ACETAMINOPHEN [Suspect]

REACTIONS (1)
  - ACCIDENTAL OVERDOSE [None]
